FAERS Safety Report 11225108 (Version 1)
Quarter: 2015Q2

REPORT INFORMATION
  Report Type: Spontaneous
  Country: SI (occurrence: SI)
  Receive Date: 20150629
  Receipt Date: 20150629
  Transmission Date: 20150821
  Serious: Yes (Other)
  Sender: FDA-Public Use
  Company Number: SI-INCYTE CORPORATION-2015IN002971

PATIENT
  Age: 60 Year
  Sex: Female

DRUGS (5)
  1. SMX/TMP [Concomitant]
     Active Substance: SULFAMETHOXAZOLE\TRIMETHOPRIM
     Indication: URINARY TRACT INFECTION
     Dosage: UNK
     Route: 065
     Dates: start: 2015
  2. EXJADE [Suspect]
     Active Substance: DEFERASIROX
     Indication: IRON OVERLOAD
     Dosage: 1500 MG, QD
     Route: 048
     Dates: start: 201303, end: 201503
  3. JAKAFI [Suspect]
     Active Substance: RUXOLITINIB
     Indication: MYELOFIBROSIS
     Dosage: 5 MG, BID
     Route: 048
     Dates: start: 201204
  4. JAKAFI [Suspect]
     Active Substance: RUXOLITINIB
     Dosage: 20 MG, BID
     Route: 048
     Dates: start: 201204
  5. OCTAGAM IMMUNE GLOBULIN (HUMAN) [Concomitant]
     Active Substance: HUMAN IMMUNOGLOBULIN G
     Indication: BRONCHOPULMONARY ASPERGILLOSIS
     Dosage: 15 G, QMO
     Route: 065

REACTIONS (8)
  - Bronchopulmonary aspergillosis [Unknown]
  - Therapeutic response decreased [Unknown]
  - Serum ferritin increased [Recovered/Resolved]
  - Haematoma [Unknown]
  - Urinary tract infection [Unknown]
  - Splenomegaly [Unknown]
  - Thrombocytopenia [Unknown]
  - Night sweats [Unknown]

NARRATIVE: CASE EVENT DATE: 201303
